FAERS Safety Report 21343325 (Version 1)
Quarter: 2022Q3

REPORT INFORMATION
  Report Type: Spontaneous
  Country: US (occurrence: US)
  Receive Date: 20220916
  Receipt Date: 20220916
  Transmission Date: 20221027
  Serious: Yes (Death, Other)
  Sender: FDA-Public Use
  Company Number: US-SA-SAC20220916000155

PATIENT
  Age: 74 Year
  Sex: Female

DRUGS (1)
  1. ZANTAC [Suspect]
     Active Substance: RANITIDINE HYDROCHLORIDE
     Dosage: UNK, QW
     Dates: start: 201703, end: 201911

REACTIONS (2)
  - Oesophageal carcinoma [Fatal]
  - Throat cancer [Fatal]

NARRATIVE: CASE EVENT DATE: 20191103
